FAERS Safety Report 11877055 (Version 1)
Quarter: 2015Q4

REPORT INFORMATION
  Report Type: Spontaneous
  Country: US (occurrence: US)
  Receive Date: 20151229
  Receipt Date: 20151229
  Transmission Date: 20160305
  Serious: Yes (Other)
  Sender: FDA-Public Use
  Company Number: US-TARO-2015TAR01176

PATIENT
  Age: 7 Year
  Sex: Male

DRUGS (4)
  1. LEVOCETIRIZINE DIHYDROCHLORIDE ORAL SOLUTION 2.5 MG/5 ML [Suspect]
     Active Substance: LEVOCETIRIZINE DIHYDROCHLORIDE
     Indication: SEASONAL ALLERGY
     Dosage: 10 ML, 1X/DAY
     Route: 048
     Dates: start: 20140926
  2. FLONASE [Concomitant]
     Active Substance: FLUTICASONE PROPIONATE
  3. SINGULAIR [Concomitant]
     Active Substance: MONTELUKAST SODIUM
  4. QVAR [Concomitant]
     Active Substance: BECLOMETHASONE DIPROPIONATE

REACTIONS (2)
  - Overdose [Not Recovered/Not Resolved]
  - Diabetes mellitus [Unknown]

NARRATIVE: CASE EVENT DATE: 20140926
